FAERS Safety Report 8070877-X (Version None)
Quarter: 2012Q1

REPORT INFORMATION
  Report Type: 
  Country: None (occurrence: None)
  Receive Date: 20120119
  Receipt Date: 20120112
  Transmission Date: 20120608
  Serious: Yes (Other)
  Sender: FDA-Public Use
  Company Number: DSA_47531_2011

PATIENT
  Sex: Male

DRUGS (9)
  1. XENAZINE [Suspect]
     Indication: HUNTINGTON'S DISEASE
     Dosage: 25;12.5 MG BID, ORAL
     Route: 048
     Dates: start: 20110101, end: 20110101
  2. XENAZINE [Suspect]
     Indication: HUNTINGTON'S DISEASE
     Dosage: 25;12.5 MG BID, ORAL
     Route: 048
     Dates: start: 20110101, end: 20110101
  3. XENAZINE [Suspect]
     Indication: HUNTINGTON'S DISEASE
     Dosage: 25;12.5 MG BID, ORAL
     Route: 048
     Dates: start: 20110303, end: 20110101
  4. XENAZINE [Suspect]
     Indication: HUNTINGTON'S DISEASE
     Dosage: 25;12.5 MG BID, ORAL
     Route: 048
     Dates: start: 20110101
  5. XENAZINE [Suspect]
     Indication: HUNTINGTON'S DISEASE
     Dosage: 25;12.5 MG BID, ORAL
     Route: 048
     Dates: start: 20110527, end: 20110101
  6. DONEPEZIL HCL [Concomitant]
  7. MULTI-VITAMIN [Concomitant]
  8. CLONAZEPAM [Concomitant]
  9. CALCIUM [Concomitant]

REACTIONS (17)
  - LOSS OF CONSCIOUSNESS [None]
  - CRYING [None]
  - ANGER [None]
  - ACTIVITIES OF DAILY LIVING IMPAIRED [None]
  - SOMNOLENCE [None]
  - ANXIETY [None]
  - LABYRINTHITIS [None]
  - SEDATION [None]
  - JUDGEMENT IMPAIRED [None]
  - AFFECT LABILITY [None]
  - IMPAIRED DRIVING ABILITY [None]
  - FALL [None]
  - BALANCE DISORDER [None]
  - GAIT DISTURBANCE [None]
  - DIZZINESS [None]
  - DEPRESSION [None]
  - DRUG INTOLERANCE [None]
